FAERS Safety Report 20802720 (Version 3)
Quarter: 2022Q2

REPORT INFORMATION
  Report Type: Report from Study
  Country: US (occurrence: US)
  Receive Date: 20220509
  Receipt Date: 20220525
  Transmission Date: 20220721
  Serious: Yes (Life-Threatening)
  Sender: FDA-Public Use
  Company Number: US-GLAXOSMITHKLINE-US2022GSK075336

PATIENT

DRUGS (3)
  1. NIRAPARIB [Suspect]
     Active Substance: NIRAPARIB
     Indication: Glioblastoma
     Dosage: 300 MG, QD (DURING PHASE 0 PARTICIPATION)
     Route: 048
     Dates: start: 20220307, end: 20220310
  2. NIRAPARIB [Suspect]
     Active Substance: NIRAPARIB
     Dosage: 200 MG, QD (STARTED AT LOWER DOSE DUE TO WEIGHT UNDER 77 KG)
     Route: 048
     Dates: start: 20220411, end: 20220503
  3. NIRAPARIB [Suspect]
     Active Substance: NIRAPARIB
     Dosage: 100 MG, QD (STARTED AT LOWER DOSE)
     Route: 048
     Dates: start: 20220516

REACTIONS (1)
  - Thrombocytopenia [Recovered/Resolved]

NARRATIVE: CASE EVENT DATE: 20220502
